FAERS Safety Report 6298281-5 (Version None)
Quarter: 2009Q3

REPORT INFORMATION
  Report Type: 
  Country: None (occurrence: None)
  Receive Date: 20090805
  Receipt Date: 20090801
  Transmission Date: 20100115
  Serious: Yes (Hospitalization)
  Sender: FDA-Public Use
  Company Number: US-GENENTECH-287886

PATIENT

DRUGS (2)
  1. BEVACIZUMAB [Suspect]
     Indication: OVARIAN CANCER RECURRENT
     Dosage: 15 MG/KG, Q21D
     Route: 042
  2. CARBOPLATIN [Concomitant]
     Indication: OVARIAN CANCER RECURRENT
     Dosage: 5 AUC, Q21D
     Route: 042

REACTIONS (2)
  - EPISTAXIS [None]
  - HAEMOGLOBIN DECREASED [None]
